FAERS Safety Report 6610907-2 (Version None)
Quarter: 2010Q1

REPORT INFORMATION
  Report Type: 
  Country: None (occurrence: None)
  Receive Date: 20100219
  Receipt Date: 20100216
  Transmission Date: 20100710
  Serious: Yes (Hospitalization, Other)
  Sender: FDA-Public Use
  Company Number: SPV1-2009-02503

PATIENT
  Sex: Female

DRUGS (2)
  1. XAGRID           (ANAGRELIDE HYDROCHLORIDE) CAPSULE [Suspect]
     Indication: ESSENTIAL THROMBOCYTHAEMIA
     Dosage: 0.5 MG TWICE DAILY 3 DAYS/WEEK AND 0.5 MG ONCE DAILY 4 DAYS/WEEK, ORAL
     Route: 048
     Dates: start: 20090623, end: 20091206
  2. HYDROXYCARBAMIDE (HYDROXYCARBAMIDE) UNKNOWN [Concomitant]

REACTIONS (2)
  - ARTERIOSPASM CORONARY [None]
  - CONDITION AGGRAVATED [None]
